APPROVED DRUG PRODUCT: PRAMIPEXOLE DIHYDROCHLORIDE
Active Ingredient: PRAMIPEXOLE DIHYDROCHLORIDE
Strength: 0.375MG
Dosage Form/Route: TABLET, EXTENDED RELEASE;ORAL
Application: A201963 | Product #001 | TE Code: AB
Applicant: ACTAVIS ELIZABETH LLC
Approved: Apr 21, 2016 | RLD: No | RS: No | Type: RX